FAERS Safety Report 9534053 (Version 1)
Quarter: 2013Q3

REPORT INFORMATION
  Report Type: Spontaneous
  Country: US (occurrence: US)
  Receive Date: 20130918
  Receipt Date: 20130918
  Transmission Date: 20140515
  Serious: No
  Sender: FDA-Public Use
  Company Number: US-PURDUE-USA-2011-0079877

PATIENT
  Age: 46 Year
  Sex: Female

DRUGS (2)
  1. BUTRANS [Suspect]
     Indication: ARTHRALGIA
     Dosage: 5 MCG, Q1H
     Route: 062
     Dates: start: 20111213
  2. BUTRANS [Suspect]
     Indication: BACK PAIN

REACTIONS (3)
  - Abasia [Unknown]
  - Drug ineffective [Unknown]
  - Pain [Unknown]
